FAERS Safety Report 8413579-X (Version None)
Quarter: 2012Q2

REPORT INFORMATION
  Report Type: 
  Country: None (occurrence: None)
  Receive Date: 20120605
  Receipt Date: 20120525
  Transmission Date: 20120825
  Serious: Yes (Hospitalization, Other)
  Sender: FDA-Public Use
  Company Number: DE-ELI_LILLY_AND_COMPANY-DE201205008735

PATIENT
  Sex: Male

DRUGS (4)
  1. INSULIN [Concomitant]
  2. VITAMIN TAB [Concomitant]
  3. METFORMIN HCL [Concomitant]
  4. FORTEO [Suspect]
     Dosage: UNK, QD
     Route: 058
     Dates: start: 20110919

REACTIONS (3)
  - SPLENOMEGALY [None]
  - CHOLELITHIASIS [None]
  - WHITE BLOOD CELL COUNT INCREASED [None]
